FAERS Safety Report 4712157-3 (Version None)
Quarter: 2005Q3

REPORT INFORMATION
  Report Type: 
  Country: None (occurrence: None)
  Receive Date: 20050712
  Receipt Date: 20041027
  Transmission Date: 20060218
  Serious: Yes (Hospitalization)
  Sender: FDA-Public Use
  Company Number: BE-ROCHE-384327

PATIENT
  Age: 34 Year
  Sex: Male
  Weight: 83.1 kg

DRUGS (8)
  1. PEG-INTERFERON ALFA 2A (RO 25-8310) [Suspect]
     Route: 058
     Dates: start: 20040430
  2. RIBAVIRIN [Suspect]
     Route: 048
     Dates: start: 20040430
  3. AMANTADINE [Suspect]
     Dosage: TRADE NAME: AMANTAN.
     Route: 048
     Dates: start: 20040430
  4. TELFAST [Concomitant]
     Dates: start: 20040715
  5. BETNELAN [Concomitant]
     Dates: start: 20040712
  6. COVERSYL [Concomitant]
     Dates: start: 20041118
  7. APACOD [Concomitant]
     Dates: start: 20041118
  8. UNIDENTIFIED DRUGS [Concomitant]
     Dosage: TRADE NAME: ^ASAFLOUS^
     Dates: start: 20041118, end: 20050503

REACTIONS (4)
  - NEPHRITIS AUTOIMMUNE [None]
  - PROTEINURIA [None]
  - SINUS POLYP [None]
  - THROMBOANGIITIS OBLITERANS [None]
